FAERS Safety Report 20589390 (Version 1)
Quarter: 2022Q1

REPORT INFORMATION
  Report Type: Spontaneous
  Country: US (occurrence: None)
  Receive Date: 20220313
  Receipt Date: 20220313
  Transmission Date: 20220424
  Serious: Yes (Hospitalization)
  Sender: FDA-Public Use
  Company Number: None

PATIENT
  Sex: Female
  Weight: 54.9 kg

DRUGS (7)
  1. CYCLOPHOSPHAMIDE [Suspect]
     Active Substance: CYCLOPHOSPHAMIDE
  2. DEXAMETHASONE [Concomitant]
     Active Substance: DEXAMETHASONE
  3. DOXORUBICIN HYDROCHLORIDE [Concomitant]
  4. HYDROCHLORIDE [Concomitant]
  5. CYTARABINE [Concomitant]
     Active Substance: CYTARABINE
  6. METHOTREXATE [Concomitant]
     Active Substance: METHOTREXATE
  7. VINCRISTINE SULFATE [Concomitant]
     Active Substance: VINCRISTINE SULFATE

REACTIONS (7)
  - Cough [None]
  - Stomatitis [None]
  - Staphylococcal infection [None]
  - Chest discomfort [None]
  - Lung opacity [None]
  - Atelectasis [None]
  - Haemoglobin decreased [None]

NARRATIVE: CASE EVENT DATE: 20220303
